FAERS Safety Report 13950702 (Version 1)
Quarter: 2017Q3

REPORT INFORMATION
  Report Type: Spontaneous
  Country: US (occurrence: US)
  Receive Date: 20170908
  Receipt Date: 20170908
  Transmission Date: 20171128
  Serious: Yes (Other)
  Sender: FDA-Public Use
  Company Number: US-BAXTER-2017BAX031523

PATIENT
  Age: 72 Year
  Sex: Female

DRUGS (4)
  1. VANCOMYCIN INJECTION, USP [Suspect]
     Active Substance: VANCOMYCIN
     Indication: SKIN INFECTION
  2. CORTISONE [Suspect]
     Active Substance: CORTISONE\HYDROCORTISONE
     Indication: RED MAN SYNDROME
  3. VANCOMYCIN INJECTION, USP [Suspect]
     Active Substance: VANCOMYCIN
     Indication: LOCALISED INFECTION
     Dosage: VANCO SOLUTION
     Route: 065
     Dates: start: 201605
  4. CORTISONE [Suspect]
     Active Substance: CORTISONE\HYDROCORTISONE
     Indication: RESPIRATORY DISORDER
     Dosage: DOSE: HIGH LEVELS
     Route: 065

REACTIONS (4)
  - Hypertrichosis [Unknown]
  - Diarrhoea [Unknown]
  - Red man syndrome [Unknown]
  - Respiratory disorder [Unknown]

NARRATIVE: CASE EVENT DATE: 201605
